FAERS Safety Report 5871971-1 (Version None)
Quarter: 2008Q3

REPORT INFORMATION
  Report Type: 
  Country: None (occurrence: None)
  Receive Date: 20080902
  Receipt Date: 20060213
  Transmission Date: 20090109
  Serious: Yes (Hospitalization)
  Sender: FDA-Public Use
  Company Number: 2008AL009358

PATIENT
  Age: 64 Year
  Sex: Female

DRUGS (17)
  1. DICLOFENAC SODIUM [Suspect]
     Dosage: 100 MG; QD; PO
     Route: 048
  2. DIGOXIN [Suspect]
     Dosage: 250 MG; QD;PO
     Route: 048
  3. FUCIDINE CAP [Concomitant]
  4. FLOXAPEN [Concomitant]
  5. BURINEX [Concomitant]
  6. WARFANT [Concomitant]
  7. TRITACE [Concomitant]
  8. CARDURA [Concomitant]
  9. PRAVASTATIN [Concomitant]
  10. EMCOR [Concomitant]
  11. FLOXACILLIN SODIUM [Concomitant]
  12. FUSIDIC ACID [Concomitant]
  13. LEVOTHYROXINE SODIUM [Concomitant]
  14. PANTOPRAZOLE SODIUM [Concomitant]
  15. MOTILIUM-M [Concomitant]
  16. ZOFRAN [Concomitant]
  17. PROCHLORPERAZINE [Concomitant]

REACTIONS (4)
  - DIALYSIS [None]
  - INTERNATIONAL NORMALISED RATIO INCREASED [None]
  - RENAL TUBULAR NECROSIS [None]
  - THERAPEUTIC AGENT TOXICITY [None]
